FAERS Safety Report 10384709 (Version 1)
Quarter: 2014Q3

REPORT INFORMATION
  Report Type: Spontaneous
  Country: US (occurrence: None)
  Receive Date: 20140812
  Receipt Date: 20140812
  Transmission Date: 20150326
  Serious: Yes (Death)
  Sender: FDA-Public Use
  Company Number: COR_00052_2014

PATIENT
  Age: 60 Year
  Sex: Female

DRUGS (1)
  1. LOMUSTINE. [Suspect]
     Active Substance: LOMUSTINE
     Indication: BRAIN CANCER METASTATIC
     Route: 048
     Dates: start: 2014

REACTIONS (10)
  - Pyrexia [None]
  - Drug dispensing error [None]
  - Neutropenia [None]
  - Thrombocytopenia [None]
  - Accidental overdose [None]
  - Bone marrow failure [None]
  - Dyspnoea [None]
  - Contusion [None]
  - Swelling [None]
  - Pain [None]

NARRATIVE: CASE EVENT DATE: 201405
